FAERS Safety Report 9660229 (Version 1)
Quarter: 2013Q4

REPORT INFORMATION
  Report Type: Spontaneous
  Country: US (occurrence: US)
  Receive Date: 20131031
  Receipt Date: 20131031
  Transmission Date: 20140711
  Serious: No
  Sender: FDA-Public Use
  Company Number: US-PURDUE-USA-2011-0067614

PATIENT
  Age: 46 Year
  Sex: Female
  Weight: 44.7 kg

DRUGS (1)
  1. OXYCONTIN TABLETS [Suspect]
     Indication: BACK PAIN
     Dosage: 20 MG, BID
     Route: 048

REACTIONS (1)
  - Drug effect decreased [Unknown]
